FAERS Safety Report 14831224 (Version 1)
Quarter: 2018Q2

REPORT INFORMATION
  Report Type: Spontaneous
  Country: FR (occurrence: FR)
  Receive Date: 20180501
  Receipt Date: 20180501
  Transmission Date: 20180711
  Serious: Yes (Other)
  Sender: FDA-Public Use
  Company Number: FR-MERCK KGAA-2046885

PATIENT
  Age: 46 Year
  Sex: Female
  Weight: 67 kg

DRUGS (2)
  1. NOVOTHYROX [Suspect]
     Active Substance: LEVOTHYROXINE SODIUM
     Indication: PRODUCT USED FOR UNKNOWN INDICATION
     Dates: start: 20170428, end: 20170516
  2. LEVOTHYROXINE SODIUM. [Suspect]
     Active Substance: LEVOTHYROXINE SODIUM
     Dates: start: 20170909, end: 20171010

REACTIONS (28)
  - Dyspnoea [Recovering/Resolving]
  - Sense of oppression [Recovering/Resolving]
  - Loss of personal independence in daily activities [Recovering/Resolving]
  - Thyroxine free increased [Recovered/Resolved]
  - Fatigue [Recovering/Resolving]
  - Insomnia [Recovering/Resolving]
  - Weight increased [Recovering/Resolving]
  - Tremor [Recovering/Resolving]
  - Depression [Not Recovered/Not Resolved]
  - Suffocation feeling [Recovering/Resolving]
  - Dizziness [Recovering/Resolving]
  - Blood thyroid stimulating hormone decreased [None]
  - Flat affect [Recovering/Resolving]
  - Personal relationship issue [Recovering/Resolving]
  - Crying [Recovering/Resolving]
  - Mental impairment [Not Recovered/Not Resolved]
  - Presyncope [Recovering/Resolving]
  - Depressive symptom [Recovering/Resolving]
  - Arrhythmia [Recovering/Resolving]
  - Impaired quality of life [Recovering/Resolving]
  - Tachycardia [Recovering/Resolving]
  - Night sweats [Recovering/Resolving]
  - Irritability [Recovering/Resolving]
  - Negative thoughts [Recovering/Resolving]
  - Neuritis [Recovering/Resolving]
  - Anger [Recovering/Resolving]
  - Asthenia [Recovering/Resolving]
  - Hyperhidrosis [Recovering/Resolving]

NARRATIVE: CASE EVENT DATE: 2017
